FAERS Safety Report 19266152 (Version 2)
Quarter: 2021Q2

REPORT INFORMATION
  Report Type: Report from Study
  Country: US (occurrence: US)
  Receive Date: 20210517
  Receipt Date: 20210601
  Transmission Date: 20210717
  Serious: Yes (Other)
  Sender: FDA-Public Use
  Company Number: NVSC2021US103649

PATIENT
  Sex: Female

DRUGS (1)
  1. KESIMPTA [Suspect]
     Active Substance: OFATUMUMAB
     Indication: MULTIPLE SCLEROSIS
     Dosage: UNK (LOADING DOSE)
     Route: 065

REACTIONS (7)
  - Influenza like illness [Unknown]
  - Headache [Unknown]
  - Adverse drug reaction [Unknown]
  - Chills [Unknown]
  - Hyperhidrosis [Unknown]
  - Throat irritation [Unknown]
  - Dizziness [Unknown]
